FAERS Safety Report 9384904 (Version 1)
Quarter: 2013Q3

REPORT INFORMATION
  Report Type: Spontaneous
  Country: US (occurrence: US)
  Receive Date: 20130705
  Receipt Date: 20130705
  Transmission Date: 20140515
  Serious: Yes (Death, Hospitalization)
  Sender: FDA-Public Use
  Company Number: US-BAYER-2013-080070

PATIENT
  Age: 60 Year
  Sex: Female

DRUGS (11)
  1. NEXAVAR [Suspect]
     Indication: HEPATIC CANCER
     Dosage: 200 MG, BID
     Route: 048
     Dates: start: 201304, end: 201306
  2. XANAX [Concomitant]
  3. XARELTO [Concomitant]
  4. METOPROLOL [Concomitant]
  5. OMEPRAZOLE [Concomitant]
  6. LISINOPRIL [Concomitant]
  7. INDAPAMIDE [Concomitant]
  8. FONDAPARINUX [Concomitant]
  9. FENTANYL [Concomitant]
  10. CYMBALTA [Concomitant]
  11. DILAUDID [Concomitant]

REACTIONS (2)
  - Hepatic cancer [Fatal]
  - Pneumonia [Fatal]
